FAERS Safety Report 9851138 (Version 4)
Quarter: 2015Q2

REPORT INFORMATION
  Report Type: Spontaneous
  Country: US (occurrence: US)
  Receive Date: 20140128
  Receipt Date: 20150423
  Transmission Date: 20150821
  Serious: Yes (Hospitalization, Disabling, Other)
  Sender: FDA-Public Use
  Company Number: US-009507513-1401USA011310

PATIENT
  Sex: Female

DRUGS (3)
  1. ALENDRONATE SODIUM. [Suspect]
     Active Substance: ALENDRONATE SODIUM
     Indication: OSTEOPOROSIS
     Dosage: 70 MG, QW
     Route: 048
     Dates: start: 20011219, end: 20090504
  2. FOSAMAX [Suspect]
     Active Substance: ALENDRONATE SODIUM
     Indication: OSTEOPOROSIS
     Dosage: 70 MG, QW
     Route: 048
     Dates: start: 1996, end: 2001
  3. CALTRATE (CALCIUM CARBONATE (+) CHOLECALCIFEROL) [Concomitant]
     Dosage: 600 UNK, UNK
     Dates: start: 1996

REACTIONS (15)
  - Haemorrhagic anaemia [Unknown]
  - Dizziness [Unknown]
  - Femur fracture [Unknown]
  - Open reduction of fracture [Unknown]
  - Anaemia postoperative [Unknown]
  - Osteoarthritis [Unknown]
  - Tachycardia [Unknown]
  - Constipation [Unknown]
  - Lung neoplasm malignant [Unknown]
  - Pyrexia [Unknown]
  - Hip arthroplasty [Not Recovered/Not Resolved]
  - Oedema peripheral [Unknown]
  - Arthroscopy [Unknown]
  - Hypokalaemia [Unknown]
  - Carpal tunnel decompression [Unknown]

NARRATIVE: CASE EVENT DATE: 1999
